FAERS Safety Report 18905118 (Version 1)
Quarter: 2021Q1

REPORT INFORMATION
  Report Type: Spontaneous
  Country: CN (occurrence: CN)
  Receive Date: 20210217
  Receipt Date: 20210217
  Transmission Date: 20210420
  Serious: Yes (Other)
  Sender: FDA-Public Use
  Company Number: CN-BAXTER-2021BAX002878

PATIENT
  Age: 37 Year
  Sex: Female
  Weight: 58 kg

DRUGS (13)
  1. ENDOXAN [Suspect]
     Active Substance: CYCLOPHOSPHAMIDE
     Dosage: DOSE REINTRODUCED; CYCLOPHOSPHAMIDE + 0.9% SODIUM CHLORIDE
     Route: 041
  2. PIRARUBICIN HYDROCHLORIDE [Suspect]
     Active Substance: PIRARUBICIN HYDROCHLORIDE
     Indication: INVASIVE DUCTAL BREAST CARCINOMA
     Dosage: 4TH CYCLE OF CHEMOTHERAPY; PIRARUBICIN HYDROCHLORIDE 78 MG + 5% GLUCOSE 250 ML
     Route: 041
     Dates: start: 20210106, end: 20210106
  3. 5% GLUCOSE  INJECTION [Suspect]
     Active Substance: DEXTROSE
     Indication: MEDICATION DILUTION
     Dosage: 1?3 CYCLES OF CHEMOTHERAPY; PIRARUBICIN HYDROCHLORIDE + 5% GLUCOSE
     Route: 041
  4. PIRARUBICIN HYDROCHLORIDE [Suspect]
     Active Substance: PIRARUBICIN HYDROCHLORIDE
     Indication: TRIPLE NEGATIVE BREAST CANCER
     Dosage: 1?3 CYCLES OF CHEMOTHERAPY; PIRARUBICIN HYDROCHLORIDE + 5% GLUCOSE
     Route: 041
  5. 5% GLUCOSE  INJECTION [Suspect]
     Active Substance: DEXTROSE
     Dosage: DOSE REINTRODUCED; PIRARUBICIN HYDROCHLORIDE + 5% GLUCOSE
     Route: 041
  6. PIRARUBICIN HYDROCHLORIDE [Suspect]
     Active Substance: PIRARUBICIN HYDROCHLORIDE
     Dosage: DOSE REINTRODUCED; PIRARUBICIN HYDROCHLORIDE + 5% GLUCOSE
     Route: 041
  7. PEGYLATED RECOMBINANT HUMAN GRANULOCYTE COLONY?STIMULATING FACTOR [Concomitant]
     Indication: PRODUCT USED FOR UNKNOWN INDICATION
     Route: 058
     Dates: start: 20210107
  8. 0.9% SODIUM CHLORIDE INJECTION [Suspect]
     Active Substance: SODIUM CHLORIDE
     Dosage: 4TH CYCLE OF CHEMOTHERAPY; CYCLOPHOSPHAMIDE 0.94G + 0.9% SODIUM CHLORIDE 100ML
     Route: 041
     Dates: start: 20210106, end: 20210106
  9. ENDOXAN [Suspect]
     Active Substance: CYCLOPHOSPHAMIDE
     Indication: TRIPLE NEGATIVE BREAST CANCER
     Dosage: 1?3 CYCLES OF CHEMOTHERAPY; CYCLOPHOSPHAMIDE + 0.9% SODIUM CHLORIDE
     Route: 041
  10. ENDOXAN [Suspect]
     Active Substance: CYCLOPHOSPHAMIDE
     Indication: INVASIVE DUCTAL BREAST CARCINOMA
     Dosage: 4TH CYCLE OF CHEMOTHERAPY; CYCLOPHOSPHAMIDE 0.94G + 0.9% SODIUM CHLORIDE 100ML
     Route: 041
     Dates: start: 20210106, end: 20210106
  11. 0.9% SODIUM CHLORIDE INJECTION [Suspect]
     Active Substance: SODIUM CHLORIDE
     Indication: MEDICATION DILUTION
     Dosage: 1?3 CYCLES OF CHEMOTHERAPY; CYCLOPHOSPHAMIDE + 0.9% SODIUM CHLORIDE
     Route: 041
  12. 0.9% SODIUM CHLORIDE INJECTION [Suspect]
     Active Substance: SODIUM CHLORIDE
     Dosage: DOSE REINTRODUCED; CYCLOPHOSPHAMIDE + 0.9% SODIUM CHLORIDE
     Route: 041
  13. 5% GLUCOSE  INJECTION [Suspect]
     Active Substance: DEXTROSE
     Dosage: 4TH CYCLE OF CHEMOTHERAPY; PIRARUBICIN HYDROCHLORIDE 78 MG + 5% GLUCOSE 250 ML
     Route: 041
     Dates: start: 20210106, end: 20210106

REACTIONS (2)
  - Neutrophil count decreased [Recovering/Resolving]
  - White blood cell count decreased [Recovering/Resolving]

NARRATIVE: CASE EVENT DATE: 20210129
